FAERS Safety Report 7090202-0 (Version None)
Quarter: 2010Q4

REPORT INFORMATION
  Report Type: 
  Country: None (occurrence: None)
  Receive Date: 20101109
  Receipt Date: 20101029
  Transmission Date: 20110411
  Serious: Yes (Life-Threatening, Hospitalization)
  Sender: FDA-Public Use
  Company Number: DE-TEVA-253304GER

PATIENT
  Age: 60 Year
  Sex: Male
  Weight: 111 kg

DRUGS (2)
  1. MORPHINE [Suspect]
     Indication: BACK PAIN
     Route: 048
     Dates: end: 20100713
  2. GABAPENTIN [Concomitant]
     Indication: BACK PAIN
     Route: 048

REACTIONS (1)
  - COLONIC PSEUDO-OBSTRUCTION [None]
